FAERS Safety Report 10060958 (Version 2)
Quarter: 2014Q2

REPORT INFORMATION
  Report Type: Spontaneous
  Country: LB (occurrence: LB)
  Receive Date: 20140405
  Receipt Date: 20140625
  Transmission Date: 20141212
  Serious: Yes (Other)
  Sender: FDA-Public Use
  Company Number: LB-ABBVIE-14P-093-1217963-00

PATIENT
  Age: 32 Year
  Sex: Male
  Weight: 106 kg

DRUGS (1)
  1. HUMIRA [Suspect]
     Indication: COLITIS ULCERATIVE
     Dates: start: 20120730

REACTIONS (2)
  - Hernia [Unknown]
  - Abdominal mass [Unknown]
